FAERS Safety Report 5743388-1 (Version None)
Quarter: 2008Q2

REPORT INFORMATION
  Report Type: 
  Country: None (occurrence: None)
  Receive Date: 20080515
  Receipt Date: 20080515
  Transmission Date: 20081010
  Serious: Yes (Other)
  Sender: FDA-Public Use
  Company Number: None

PATIENT
  Age: 37 Year
  Sex: Female
  Weight: 47.6277 kg

DRUGS (2)
  1. AMBIEN CR [Suspect]
     Indication: INSOMNIA
     Dates: start: 20080208, end: 20080401
  2. AMBIEN CR [Suspect]
     Indication: STRESS
     Dates: start: 20080208, end: 20080401

REACTIONS (13)
  - ADVERSE DRUG REACTION [None]
  - ANXIETY [None]
  - CHEST DISCOMFORT [None]
  - ECONOMIC PROBLEM [None]
  - EMOTIONAL DISORDER [None]
  - HYPOAESTHESIA [None]
  - IMPAIRED DRIVING ABILITY [None]
  - IMPAIRED WORK ABILITY [None]
  - MUSCLE SPASMS [None]
  - MUSCLE TWITCHING [None]
  - NERVOUS SYSTEM DISORDER [None]
  - PANIC REACTION [None]
  - RESTLESS LEGS SYNDROME [None]
